FAERS Safety Report 11232549 (Version 2)
Quarter: 2016Q3

REPORT INFORMATION
  Report Type: Spontaneous
  Country: US (occurrence: US)
  Receive Date: 20150701
  Receipt Date: 20160808
  Transmission Date: 20161109
  Serious: No
  Sender: FDA-Public Use
  Company Number: US-GLAXOSMITHKLINE-US2015094204

PATIENT
  Age: 59 Year
  Sex: Female

DRUGS (8)
  1. LIPITOR [Concomitant]
     Active Substance: ATORVASTATIN CALCIUM
  2. QNASL [Concomitant]
     Active Substance: BECLOMETHASONE DIPROPIONATE
  3. ANORO ELLIPTA [Suspect]
     Active Substance: UMECLIDINIUM BROMIDE\VILANTEROL TRIFENATATE
     Indication: CHRONIC OBSTRUCTIVE PULMONARY DISEASE
     Dosage: 1 PUFF(S), QD
     Route: 055
     Dates: start: 20150625
  4. ANORO ELLIPTA [Suspect]
     Active Substance: UMECLIDINIUM BROMIDE\VILANTEROL TRIFENATATE
     Dosage: 1 PUFF(S), QD
     Dates: start: 20160719
  5. ASPIRIN. [Concomitant]
     Active Substance: ASPIRIN
  6. FOSAMAX [Concomitant]
     Active Substance: ALENDRONATE SODIUM
  7. ATIVAN [Concomitant]
     Active Substance: LORAZEPAM
  8. NEBULIZED ALBUTEROL [Concomitant]
     Active Substance: ALBUTEROL
     Dosage: UNK

REACTIONS (9)
  - Facial pain [Recovering/Resolving]
  - Chills [Recovering/Resolving]
  - Nasal congestion [Recovering/Resolving]
  - Tremor [Recovering/Resolving]
  - Headache [Recovering/Resolving]
  - Cough [Not Recovered/Not Resolved]
  - Nervousness [Recovering/Resolving]
  - Anxiety [Recovering/Resolving]
  - Dry mouth [Not Recovered/Not Resolved]

NARRATIVE: CASE EVENT DATE: 20150625
